FAERS Safety Report 6845271-7 (Version None)
Quarter: 2010Q3

REPORT INFORMATION
  Report Type: 
  Country: None (occurrence: None)
  Receive Date: 20100715
  Receipt Date: 20080614
  Transmission Date: 20110219
  Serious: No
  Sender: FDA-Public Use
  Company Number: US-PFIZER INC-2007068689

PATIENT
  Sex: Female
  Weight: 63.636 kg

DRUGS (9)
  1. CHANTIX [Suspect]
     Dates: start: 20070803
  2. ACCUPRIL [Concomitant]
  3. LIPITOR [Concomitant]
  4. HYDROCODONE [Concomitant]
  5. ACETYLSALICYLIC ACID [Concomitant]
  6. NASAL PREPARATIONS [Concomitant]
  7. ALLERGY MEDICATION [Concomitant]
  8. DIURETICS [Concomitant]
  9. ALL OTHER THERAPEUTIC PRODUCTS [Concomitant]

REACTIONS (4)
  - ABDOMINAL PAIN UPPER [None]
  - FEELING ABNORMAL [None]
  - MALAISE [None]
  - NAUSEA [None]
